FAERS Safety Report 8599896-1 (Version None)
Quarter: 2012Q3

REPORT INFORMATION
  Report Type: 
  Country: None (occurrence: None)
  Receive Date: 20120816
  Receipt Date: 20120706
  Transmission Date: 20120928
  Serious: No
  Sender: FDA-Public Use
  Company Number: US-AMGEN-USASP2011068933

PATIENT
  Age: 79 Year
  Sex: Female

DRUGS (4)
  1. PROMACTA [Concomitant]
  2. NPLATE [Suspect]
     Indication: IDIOPATHIC THROMBOCYTOPENIC PURPURA
     Dosage: 110 MUG, UNK
     Dates: start: 20120705
  3. NPLATE [Suspect]
     Dosage: 108 MUG, UNK
     Dates: start: 20100309
  4. NPLATE [Suspect]
     Dosage: UNK
     Dates: start: 20100309

REACTIONS (15)
  - WEIGHT INCREASED [None]
  - NIGHTMARE [None]
  - GASTROOESOPHAGEAL REFLUX DISEASE [None]
  - DYSPEPSIA [None]
  - PRODUCTIVE COUGH [None]
  - RHINORRHOEA [None]
  - DYSPNOEA [None]
  - VERTIGO [None]
  - GLUCOSE TOLERANCE IMPAIRED [None]
  - PLATELET COUNT INCREASED [None]
  - BLOOD GLUCOSE INCREASED [None]
  - INSOMNIA [None]
  - DIZZINESS [None]
  - HYPOGLYCAEMIA [None]
  - PLATELET COUNT DECREASED [None]
